FAERS Safety Report 8901664 (Version 1)
Quarter: 2012Q4

REPORT INFORMATION
  Report Type: Spontaneous
  Country: US (occurrence: None)
  Receive Date: 20121108
  Receipt Date: 20121108
  Transmission Date: 20130627
  Serious: No
  Sender: FDA-Public Use
  Company Number: None

PATIENT
  Age: 55 Year
  Sex: Male
  Weight: 75.5 kg

DRUGS (1)
  1. TELAPREVIR [Suspect]
     Indication: HEPATITIS C
     Dosage: 2 TAB TID PO
     Route: 048
     Dates: start: 20120831, end: 20121005

REACTIONS (6)
  - Rash [None]
  - Pruritus [None]
  - Dysphagia [None]
  - Oropharyngeal pain [None]
  - Oral mucosal eruption [None]
  - Eye disorder [None]
